FAERS Safety Report 12980222 (Version 3)
Quarter: 2017Q2

REPORT INFORMATION
  Report Type: Spontaneous
  Country: US (occurrence: US)
  Receive Date: 20161128
  Receipt Date: 20170526
  Transmission Date: 20170830
  Serious: Yes (Hospitalization, Other)
  Sender: FDA-Public Use
  Company Number: US-SA-2016SA214194

PATIENT
  Age: 61 Year
  Sex: Female

DRUGS (15)
  1. LISINOPRIL. [Concomitant]
     Active Substance: LISINOPRIL
  2. CYPROHEPTADINE. [Concomitant]
     Active Substance: CYPROHEPTADINE
  3. BACLOFEN. [Concomitant]
     Active Substance: BACLOFEN
  4. POTASSIUM [Concomitant]
     Active Substance: POTASSIUM
  5. BUPROPION. [Concomitant]
     Active Substance: BUPROPION
  6. PANCRELIPASE. [Concomitant]
     Active Substance: PANCRELIPASE
  7. LOPID [Concomitant]
     Active Substance: GEMFIBROZIL
  8. PROTONIX [Concomitant]
     Active Substance: PANTOPRAZOLE SODIUM
  9. VITAMIN B12 [Concomitant]
     Active Substance: CYANOCOBALAMIN
  10. FUROSEMIDE. [Concomitant]
     Active Substance: FUROSEMIDE
  11. AUBAGIO [Suspect]
     Active Substance: TERIFLUNOMIDE
     Indication: MULTIPLE SCLEROSIS
     Route: 048
     Dates: start: 20150923
  12. MORPHINE [Concomitant]
     Active Substance: MORPHINE
  13. CARVEDILOL. [Concomitant]
     Active Substance: CARVEDILOL
  14. AUBAGIO [Suspect]
     Active Substance: TERIFLUNOMIDE
     Indication: MULTIPLE SCLEROSIS
     Route: 048
     Dates: start: 20160514
  15. XANAX [Concomitant]
     Active Substance: ALPRAZOLAM

REACTIONS (5)
  - Malaise [Unknown]
  - Pneumonia [Unknown]
  - Colitis [Unknown]
  - Pancreatitis [Unknown]
  - Liver disorder [Unknown]

NARRATIVE: CASE EVENT DATE: 20161102
